FAERS Safety Report 12842389 (Version 1)
Quarter: 2016Q4

REPORT INFORMATION
  Report Type: Spontaneous
  Country: PT (occurrence: PT)
  Receive Date: 20161013
  Receipt Date: 20161013
  Transmission Date: 20170207
  Serious: Yes (Hospitalization)
  Sender: FDA-Public Use
  Company Number: PT-WEST-WARD PHARMACEUTICALS CORP.-PT-H14001-16-02151

PATIENT
  Age: 43 Year
  Sex: Male

DRUGS (8)
  1. COLISTINA GENERIS [Suspect]
     Active Substance: COLISTIMETHATE SODIUM
     Indication: ACINETOBACTER INFECTION
     Route: 042
     Dates: start: 20160911, end: 201609
  2. PARAMOLAN [Concomitant]
     Indication: PAIN
     Route: 048
     Dates: start: 20160902
  3. METRONIDAZOL LABESFAL [Concomitant]
     Indication: BACTERIAL INFECTION
     Route: 042
     Dates: start: 20160901, end: 20160911
  4. OMEPRAZOL GENERIS [Concomitant]
     Indication: PROPHYLAXIS
     Route: 048
     Dates: start: 20160829
  5. MEROPENEM HIKMA [Concomitant]
     Active Substance: MEROPENEM
     Indication: ESCHERICHIA INFECTION
     Route: 042
     Dates: start: 20160901, end: 20160911
  6. VANCOMICINA HIKMA [Suspect]
     Active Substance: VANCOMYCIN HYDROCHLORIDE
     Indication: ACINETOBACTER INFECTION
     Route: 065
     Dates: start: 20160914
  7. COLISTINA GENERIS [Suspect]
     Active Substance: COLISTIMETHATE SODIUM
     Route: 042
     Dates: start: 201609, end: 20160926
  8. LOVENOX [Concomitant]
     Active Substance: ENOXAPARIN SODIUM
     Indication: THROMBOSIS PROPHYLAXIS
     Route: 058
     Dates: start: 20160902

REACTIONS (4)
  - Nephropathy toxic [Unknown]
  - Drug interaction [Unknown]
  - Paraesthesia [Recovered/Resolved]
  - Vision blurred [Recovered/Resolved]

NARRATIVE: CASE EVENT DATE: 20160913
